FAERS Safety Report 5412503-1 (Version None)
Quarter: 2007Q3

REPORT INFORMATION
  Report Type: 
  Country: None (occurrence: None)
  Receive Date: 20070813
  Receipt Date: 20070807
  Transmission Date: 20080115
  Serious: Yes (Death)
  Sender: FDA-Public Use
  Company Number: A0668662A

PATIENT
  Age: 80 Year
  Sex: Male

DRUGS (5)
  1. FLONASE [Suspect]
     Route: 045
  2. DIALYSIS [Concomitant]
  3. ASTHMA MEDICATION [Concomitant]
  4. BLOOD PRESSURE MEDICINES [Concomitant]
  5. UNSPECIFIED MEDICATION [Concomitant]

REACTIONS (1)
  - DEATH [None]
